FAERS Safety Report 7672496-3 (Version None)
Quarter: 2011Q3

REPORT INFORMATION
  Report Type: 
  Country: None (occurrence: None)
  Receive Date: 20110809
  Receipt Date: 20110727
  Transmission Date: 20111222
  Serious: Yes (Other)
  Sender: FDA-Public Use
  Company Number: US-UCBSA-028448

PATIENT
  Sex: Male
  Weight: 77.56 kg

DRUGS (3)
  1. CIMZIA [Suspect]
     Indication: CROHN'S DISEASE
     Dosage: LOADING DOSE
     Route: 058
     Dates: start: 20110105, end: 20110208
  2. ASACOL [Concomitant]
     Indication: CROHN'S DISEASE
     Dosage: 400 (UNITS UNSPECIFIED) THRICE A DAY
     Route: 048
  3. PREDNISONE [Concomitant]
     Indication: CROHN'S DISEASE
     Dosage: ON OCASION.

REACTIONS (1)
  - PSORIASIS [None]
